FAERS Safety Report 5216706-0 (Version None)
Quarter: 2007Q1

REPORT INFORMATION
  Report Type: 
  Country: None (occurrence: None)
  Receive Date: 20061130
  Receipt Date: 20060928
  Transmission Date: 20070707
  Serious: Yes (Hospitalization)
  Sender: FDA-Public Use
  Company Number: US200605002125

PATIENT
  Age: 53 Year
  Sex: Female
  Weight: 149.7 kg

DRUGS (1)
  1. ZYPREXA [Suspect]
     Dosage: SEE IMAGE
     Dates: start: 20000501, end: 20050301

REACTIONS (2)
  - CARDIAC FAILURE CONGESTIVE [None]
  - DIABETES MELLITUS [None]
